FAERS Safety Report 8583415-X (Version None)
Quarter: 2012Q3

REPORT INFORMATION
  Report Type: 
  Country: None (occurrence: None)
  Receive Date: 20120809
  Receipt Date: 20120802
  Transmission Date: 20120928
  Serious: Yes (Other)
  Sender: FDA-Public Use
  Company Number: CHPA2012US016385

PATIENT
  Age: 28 Year
  Sex: Female

DRUGS (1)
  1. VOLTAREN [Suspect]
     Indication: PAIN
     Dosage: UNK, TID
     Route: 061
     Dates: start: 20120724

REACTIONS (7)
  - OFF LABEL USE [None]
  - DRUG ADMINISTERED AT INAPPROPRIATE SITE [None]
  - WHEEZING [None]
  - PRURITUS [None]
  - WRONG TECHNIQUE IN DRUG USAGE PROCESS [None]
  - ASTHMA [None]
  - COUGH [None]
